FAERS Safety Report 8766006 (Version 3)
Quarter: 2012Q4

REPORT INFORMATION
  Report Type: 
  Country: US (occurrence: US)
  Receive Date: 20120904
  Receipt Date: 20120929
  Transmission Date: 20130627
  Serious: Yes (Hospitalization, Disabling)
  Sender: FDA-Public Use
  Company Number: US-009507513-1208USA012531

PATIENT
  Sex: Female

DRUGS (8)
  1. VICTRELIS [Suspect]
     Indication: HEPATITIS C
     Dosage: 800 mg, tid
     Route: 048
     Dates: start: 201203, end: 20120801
  2. REBETOL [Suspect]
     Dosage: UNK
     Route: 048
     Dates: start: 20120214
  3. PEGASYS [Concomitant]
     Dosage: UNK
     Dates: start: 20120214
  4. ZEGERID [Concomitant]
  5. AVALIDE 300 [Concomitant]
     Dosage: 12.5 mg, tid
  6. METOPROLOL [Concomitant]
  7. ACTONEL [Concomitant]
     Dosage: 35 mg, qw
  8. METHIMAZOLE [Suspect]

REACTIONS (9)
  - Haemoptysis [Recovering/Resolving]
  - Asthenia [Recovering/Resolving]
  - Fatigue [Recovering/Resolving]
  - Myalgia [Recovering/Resolving]
  - Dysgeusia [Recovering/Resolving]
  - Nausea [Recovering/Resolving]
  - Vomiting [Recovering/Resolving]
  - Weight decreased [Recovering/Resolving]
  - Anaemia [Recovered/Resolved]
